FAERS Safety Report 26072817 (Version 1)
Quarter: 2025Q4

REPORT INFORMATION
  Report Type: Spontaneous
  Country: US (occurrence: US)
  Receive Date: 20251121
  Receipt Date: 20251121
  Transmission Date: 20260118
  Serious: No
  Sender: MERCK SHARP & DOHME LLC
  Company Number: US-009507513-2348900

PATIENT
  Sex: Female

DRUGS (1)
  1. JANUVIA [Suspect]
     Active Substance: SITAGLIPTIN PHOSPHATE
     Indication: Type 2 diabetes mellitus
     Dosage: 50 MG

REACTIONS (6)
  - Muscle spasms [Unknown]
  - Dizziness [Unknown]
  - Oropharyngeal pain [Unknown]
  - Arthralgia [Unknown]
  - Headache [Unknown]
  - Cough [Unknown]
